FAERS Safety Report 9837720 (Version 2)
Quarter: 2014Q2

REPORT INFORMATION
  Report Type: Report from Study
  Country: GR (occurrence: GR)
  Receive Date: 20140123
  Receipt Date: 20140409
  Transmission Date: 20141212
  Serious: Yes (Death)
  Sender: FDA-Public Use
  Company Number: GR-ASTELLAS-2014EU000422

PATIENT
  Age: 43 Year
  Sex: Male
  Weight: 45 kg

DRUGS (4)
  1. MICAFUNGIN INJECTION [Suspect]
     Indication: PYREXIA
     Dosage: 100 MG, UID/QD
     Route: 042
     Dates: end: 20131020
  2. SOLUMEDROL [Concomitant]
     Dosage: 125 MG, UNKNOWN/D
     Route: 065
     Dates: start: 20130926
  3. SOLUMEDROL [Concomitant]
     Dosage: 40 MG, UNKNOWN/D
     Route: 065
     Dates: start: 20131020
  4. PIPERACILLIN/TAZOBACTAM [Concomitant]
     Dosage: 4.5 G, QID
     Route: 065
     Dates: start: 20131003, end: 20131020

REACTIONS (2)
  - Cardiac failure [Fatal]
  - Anaemia [Fatal]
